FAERS Safety Report 6345076-X (Version None)
Quarter: 2009Q3

REPORT INFORMATION
  Report Type: 
  Country: None (occurrence: None)
  Receive Date: 20090909
  Receipt Date: 20090827
  Transmission Date: 20100115
  Serious: Yes (Hospitalization)
  Sender: FDA-Public Use
  Company Number: GB-RANBAXY-2009RR-26946

PATIENT
  Age: 34 Year
  Sex: Male

DRUGS (3)
  1. PARACETAMOL [Suspect]
     Indication: SELF INJURIOUS BEHAVIOUR
     Dosage: 50 DF, UNK
  2. CITALOPRAM HYDROBROMIDE [Concomitant]
     Dosage: 20 MG, UNK
  3. RISPERIDONE [Concomitant]
     Dosage: 5 MG, QD

REACTIONS (1)
  - INTENTIONAL OVERDOSE [None]
